FAERS Safety Report 9008672 (Version 5)
Quarter: 2013Q4

REPORT INFORMATION
  Report Type: Spontaneous
  Country: GB (occurrence: GB)
  Receive Date: 20130111
  Receipt Date: 20131007
  Transmission Date: 20140711
  Serious: Yes (Other)
  Sender: FDA-Public Use
  Company Number: GB-PFIZER INC-2013010174

PATIENT
  Age: 80 Year
  Sex: Male
  Weight: 59.42 kg

DRUGS (9)
  1. ATORVASTATIN [Suspect]
     Indication: BLOOD CHOLESTEROL INCREASED
     Dosage: 20 MG, UNK
     Route: 048
     Dates: start: 20110321, end: 20120726
  2. ZOCOR [Suspect]
     Indication: BLOOD CHOLESTEROL INCREASED
     Dosage: 40 MG, 1X/DAY AT NIGHT
     Route: 048
     Dates: start: 20070427, end: 200808
  3. ROSUVASTATIN [Suspect]
     Indication: BLOOD CHOLESTEROL INCREASED
     Dosage: 10 MG, 1X/DAY AT NIGHT
     Route: 048
     Dates: start: 20100818, end: 20101222
  4. EZETROL [Suspect]
     Indication: BLOOD CHOLESTEROL INCREASED
     Dosage: 10 MG, 1X/DAY AT NIGHT
     Route: 048
     Dates: start: 20120726, end: 20120815
  5. AMLODIPINE [Concomitant]
     Dosage: 5 MG, UNK
  6. LOSARTAN POTASSIUM [Concomitant]
     Dosage: 50 MG, UNK
  7. GLICLAZIDE [Concomitant]
     Dosage: 30 MG, UNK
  8. ASPIRIN [Concomitant]
     Dosage: 75 MG, UNK
  9. ALLOPURINOL [Concomitant]
     Dosage: 300 MG, UNK

REACTIONS (4)
  - Muscle atrophy [Not Recovered/Not Resolved]
  - Myalgia [Not Recovered/Not Resolved]
  - Arthralgia [Not Recovered/Not Resolved]
  - Weight decreased [Unknown]
